FAERS Safety Report 5868081-6 (Version None)
Quarter: 2008Q3

REPORT INFORMATION
  Report Type: 
  Country: None (occurrence: None)
  Receive Date: 20080902
  Receipt Date: 20080329
  Transmission Date: 20090109
  Serious: No
  Sender: FDA-Public Use
  Company Number: US-ABBOTT-08P-163-0444571-00

PATIENT
  Sex: Female
  Weight: 54.48 kg

DRUGS (2)
  1. DEPAKOTE ER [Suspect]
     Indication: CONVULSION
     Dosage: 500 MG
     Route: 048
     Dates: start: 20051101, end: 20071101
  2. BIRTH CONTROL PILL [Concomitant]
     Indication: DRUG USE FOR UNKNOWN INDICATION
     Route: 048
     Dates: end: 20061101

REACTIONS (2)
  - AMENORRHOEA [None]
  - POLYCYSTIC OVARIES [None]
